FAERS Safety Report 20321918 (Version 1)
Quarter: 2022Q1

REPORT INFORMATION
  Report Type: Spontaneous
  Country: NO (occurrence: NO)
  Receive Date: 20220111
  Receipt Date: 20220111
  Transmission Date: 20220423
  Serious: Yes (Life-Threatening, Hospitalization, Other)
  Sender: FDA-Public Use
  Company Number: None

PATIENT
  Age: 57 Year
  Sex: Female

DRUGS (2)
  1. VOLTAREN [Interacting]
     Active Substance: DICLOFENAC SODIUM
     Indication: Product used for unknown indication
     Dosage: 1 DF, TIME: 11.30 AM
     Route: 048
     Dates: start: 20210628
  2. SPIKEVAX [Interacting]
     Active Substance: ELASOMERAN
     Indication: Immunisation
     Dosage: DOSE NO. IN SERIES: 1 VACCINATION SITE: LEFTARMTIME: 15: 00
     Route: 030
     Dates: start: 20210614

REACTIONS (2)
  - Anaphylactic shock [Recovered/Resolved]
  - Drug interaction [Recovered/Resolved]

NARRATIVE: CASE EVENT DATE: 20210628
